FAERS Safety Report 6312276-4 (Version None)
Quarter: 2009Q3

REPORT INFORMATION
  Report Type: 
  Country: None (occurrence: None)
  Receive Date: 20090817
  Receipt Date: 20090803
  Transmission Date: 20100115
  Serious: Yes (Other)
  Sender: FDA-Public Use
  Company Number: US-MYLANLABS-2009S1013646

PATIENT
  Age: 68 Year
  Sex: Female

DRUGS (1)
  1. LOVASTATIN [Suspect]
     Indication: HYPERLIPIDAEMIA

REACTIONS (1)
  - AMYOTROPHIC LATERAL SCLEROSIS [None]
